FAERS Safety Report 21923308 (Version 2)
Quarter: 2023Q2

REPORT INFORMATION
  Report Type: Spontaneous
  Country: US (occurrence: US)
  Receive Date: 20230129
  Receipt Date: 20230404
  Transmission Date: 20230722
  Serious: No
  Sender: FDA-Public Use
  Company Number: US-AMGEN-USASP2023011743

PATIENT
  Age: 65 Year
  Sex: Female

DRUGS (1)
  1. REPATHA [Suspect]
     Active Substance: EVOLOCUMAB
     Indication: Hypercholesterolaemia
     Dosage: 140 MILLIGRAM, Q2WK
     Route: 058
     Dates: start: 20230111

REACTIONS (5)
  - Abdominal pain [Unknown]
  - Anal incontinence [Not Recovered/Not Resolved]
  - Abdominal distension [Unknown]
  - Sensory loss [Unknown]
  - Fatigue [Unknown]

NARRATIVE: CASE EVENT DATE: 20230111
